FAERS Safety Report 8337256-9 (Version None)
Quarter: 2012Q2

REPORT INFORMATION
  Report Type: 
  Country: None (occurrence: None)
  Receive Date: 20120502
  Receipt Date: 20120426
  Transmission Date: 20120825
  Serious: Yes (Other)
  Sender: FDA-Public Use
  Company Number: DSA_56004_2012

PATIENT
  Sex: Female
  Weight: 74.8435 kg

DRUGS (11)
  1. LEVOTHYROXINE SODIUM [Concomitant]
  2. SPIRIVA [Concomitant]
  3. NASONEX [Concomitant]
  4. DOC-Q-LACE [Concomitant]
  5. THYROID [Concomitant]
  6. XENAZINE [Suspect]
     Indication: HUNTINGTON'S DISEASE
     Dosage: (12.5 MG TID ORAL), (25 MG BID ORAL)
     Route: 048
     Dates: start: 20120218, end: 20120201
  7. XENAZINE [Suspect]
     Indication: HUNTINGTON'S DISEASE
     Dosage: (12.5 MG TID ORAL), (25 MG BID ORAL)
     Route: 048
     Dates: start: 20120226
  8. TRAZODONE HCL [Concomitant]
  9. OMEPRAZOLE [Concomitant]
  10. SYMBICORT [Concomitant]
  11. CITALOPRAM HYDROBROMIDE [Concomitant]

REACTIONS (2)
  - VISION BLURRED [None]
  - RENAL MASS [None]
